FAERS Safety Report 24620158 (Version 1)
Quarter: 2024Q4

REPORT INFORMATION
  Report Type: Spontaneous
  Country: US (occurrence: US)
  Receive Date: 20241114
  Receipt Date: 20241114
  Transmission Date: 20250115
  Serious: No
  Sender: CURRAX PHARMACEUTICALS
  Company Number: CRAX2401296

PATIENT
  Age: 50 Year
  Sex: Female
  Weight: 117.46 kg

DRUGS (7)
  1. CONTRAVE [Suspect]
     Active Substance: BUPROPION HYDROCHLORIDE\NALTREXONE HYDROCHLORIDE
     Indication: Weight control
     Dosage: STRENGTH: 8/90 MG, 2 TABLETS TWICE DAILY (2 IN AM, 2 IN EARLY PM)
     Route: 048
     Dates: start: 20240619, end: 2024
  2. FAMOTIDINE [Concomitant]
     Active Substance: FAMOTIDINE
     Indication: Gastrooesophageal reflux disease
     Dosage: 2XDAILY
  3. PANTOPRAZOLE [Concomitant]
     Active Substance: PANTOPRAZOLE
     Indication: Gastrooesophageal reflux disease
     Dosage: 1XDAILY
  4. OXYCODONE [Concomitant]
     Active Substance: OXYCODONE
     Indication: Pain management
     Dosage: 3XDAILY
  5. APAP [Concomitant]
     Active Substance: ACETAMINOPHEN
     Indication: Pain management
     Dosage: 3XDAILY
  6. ESTRADIOL [Concomitant]
     Active Substance: ESTRADIOL
     Indication: Pain management
     Dosage: 2XWEEKLY
  7. GEMTESA [Concomitant]
     Active Substance: VIBEGRON
     Indication: Pain management
     Dosage: 1X DAILY

REACTIONS (6)
  - Abdominal pain upper [Not Recovered/Not Resolved]
  - Dizziness [Not Recovered/Not Resolved]
  - Nausea [Recovered/Resolved]
  - Vomiting [Recovered/Resolved]
  - Gastrointestinal pain [Not Recovered/Not Resolved]
  - Intentional product use issue [Unknown]

NARRATIVE: CASE EVENT DATE: 20240619
